FAERS Safety Report 7392528-X (Version None)
Quarter: 2011Q1

REPORT INFORMATION
  Report Type: 
  Country: None (occurrence: None)
  Receive Date: 20110324
  Receipt Date: 20110310
  Transmission Date: 20110831
  Serious: Yes (Hospitalization, Other)
  Sender: FDA-Public Use
  Company Number: 2011AP000067

PATIENT
  Age: 22 Year
  Sex: Female

DRUGS (8)
  1. TOPIRAMATE [Suspect]
     Indication: MIGRAINE
     Dosage: 400 MG;PO
     Route: 048
  2. METOPROLOL TARTRATE [Concomitant]
  3. CLONIDINE [Concomitant]
  4. GABAPENTIN [Concomitant]
  5. OXYCODONE [Concomitant]
  6. ACETAMINOPHEN [Concomitant]
  7. TIZANIDINE [Concomitant]
  8. PYRIDOSTIGMINE BROMIDE [Concomitant]

REACTIONS (16)
  - AUTONOMIC NERVOUS SYSTEM IMBALANCE [None]
  - ANXIETY [None]
  - BLOOD CHLORIDE INCREASED [None]
  - RENAL TUBULAR ACIDOSIS [None]
  - FLUSHING [None]
  - APHASIA [None]
  - DISORIENTATION [None]
  - AMNESIA [None]
  - CONFUSIONAL STATE [None]
  - METABOLIC ACIDOSIS [None]
  - SCREAMING [None]
  - HYPERTENSION [None]
  - MENTAL STATUS CHANGES [None]
  - RESPIRATORY ALKALOSIS [None]
  - TOXICITY TO VARIOUS AGENTS [None]
  - TACHYCARDIA [None]
